FAERS Safety Report 8773216 (Version 1)
Quarter: 2012Q4

REPORT INFORMATION
  Report Type: 
  Country: JP (occurrence: JP)
  Receive Date: 20120907
  Receipt Date: 20120907
  Transmission Date: 20130627
  Serious: Yes (Hospitalization, Other)
  Sender: FDA-Public Use
  Company Number: JP-ROCHE-1082952

PATIENT
  Age: 63 Year
  Sex: Female
  Weight: 47 kg

DRUGS (10)
  1. AVASTIN [Suspect]
     Indication: BREAST CANCER
     Route: 041
     Dates: start: 20111014, end: 20120221
  2. PACLITAXEL [Suspect]
     Indication: BREAST CANCER METASTATIC
     Route: 041
     Dates: start: 20111014, end: 20111101
  3. PACLITAXEL [Suspect]
     Indication: BREAST CANCER METASTATIC
     Route: 041
     Dates: start: 20111115, end: 20120214
  4. CELECOX [Concomitant]
     Indication: OROPHARYNGEAL PAIN
     Route: 048
     Dates: start: 20110913
  5. LYRICA [Concomitant]
     Indication: PAIN IN EXTREMITY
     Route: 048
     Dates: start: 20110913
  6. CLARITH [Concomitant]
     Indication: ATYPICAL MYCOBACTERIAL INFECTION
     Route: 048
  7. RIFAMPICIN [Concomitant]
     Indication: ATYPICAL MYCOBACTERIAL INFECTION
     Route: 048
  8. ESANBUTOL [Concomitant]
     Indication: ATYPICAL MYCOBACTERIAL INFECTION
     Route: 048
  9. BLOPRESS [Concomitant]
     Indication: HYPERTENSION
     Route: 048
  10. LANSOPRAZOLE [Concomitant]
     Indication: GASTROOESOPHAGEAL REFLUX DISEASE
     Route: 048

REACTIONS (2)
  - Oesophageal ulcer [Not Recovered/Not Resolved]
  - Erosive oesophagitis [Unknown]
